FAERS Safety Report 22585179 (Version 3)
Quarter: 2024Q3

REPORT INFORMATION
  Report Type: Report from Study
  Country: US (occurrence: US)
  Receive Date: 20230609
  Receipt Date: 20240918
  Transmission Date: 20241016
  Serious: No
  Sender: NOVARTIS
  Company Number: US-002147023-NVSC2023US130375

PATIENT
  Sex: Female

DRUGS (1)
  1. ENTRESTO [Suspect]
     Active Substance: SACUBITRIL\VALSARTAN
     Indication: Cardiac failure
     Dosage: 1 DOSAGE FORM, BID, (97/103 MG)
     Route: 048
     Dates: start: 202206

REACTIONS (3)
  - Fluid retention [Unknown]
  - Cough [Unknown]
  - Inappropriate schedule of product administration [Unknown]
